FAERS Safety Report 6927590-9 (Version None)
Quarter: 2010Q3

REPORT INFORMATION
  Report Type: 
  Country: None (occurrence: None)
  Receive Date: 20100816
  Receipt Date: 20100816
  Transmission Date: 20110219
  Serious: No
  Sender: FDA-Public Use
  Company Number: None

PATIENT
  Age: 6 Year
  Sex: Male
  Weight: 22.6799 kg

DRUGS (1)
  1. SULFACETAMIDE SODIUM [Suspect]
     Indication: INFECTION PROPHYLAXIS
     Dosage: 1 DROP 4 TIMES A DAY OPHTHALMIC
     Route: 047
     Dates: start: 20100814, end: 20100815

REACTIONS (2)
  - INTERCEPTED DRUG DISPENSING ERROR [None]
  - MEDICATION ERROR [None]
